FAERS Safety Report 22901623 (Version 2)
Quarter: 2024Q1

REPORT INFORMATION
  Report Type: Spontaneous
  Country: ES (occurrence: ES)
  Receive Date: 20230904
  Receipt Date: 20240117
  Transmission Date: 20240410
  Serious: Yes (Hospitalization)
  Sender: FDA-Public Use
  Company Number: None

PATIENT
  Age: 74 Year

DRUGS (5)
  1. VALACYCLOVIR HYDROCHLORIDE [Suspect]
     Active Substance: VALACYCLOVIR HYDROCHLORIDE
     Indication: Herpes zoster
     Dosage: VALACICLOVIR (2710A)
     Route: 048
     Dates: start: 20220719, end: 20220726
  2. MEROPENEM [Suspect]
     Active Substance: MEROPENEM
     Indication: Bacteraemia
     Dosage: MEROPENEM (7155A)
     Route: 042
     Dates: start: 20220719, end: 20220720
  3. CEFTRIAXONE [Suspect]
     Active Substance: CEFTRIAXONE\CEFTRIAXONE SODIUM
     Indication: Bacteraemia
     Dosage: CEFTRIAXONA (501A)
     Route: 042
     Dates: start: 20220720, end: 20220730
  4. DAPTOMYCIN [Suspect]
     Active Substance: DAPTOMYCIN
     Indication: Bacteraemia
     Dosage: DAPTOMICINA (7068A)
     Route: 042
     Dates: start: 20220719, end: 20220720
  5. ERTAPENEM [Suspect]
     Active Substance: ERTAPENEM
     Indication: Bacteraemia
     Dosage: ERTAPENEM (2881A)
     Route: 042
     Dates: start: 20220720, end: 20220720

REACTIONS (1)
  - Hepatocellular injury [Recovered/Resolved]

NARRATIVE: CASE EVENT DATE: 20220726
